FAERS Safety Report 21923098 (Version 3)
Quarter: 2023Q4

REPORT INFORMATION
  Report Type: Spontaneous
  Country: GB (occurrence: GB)
  Receive Date: 20230129
  Receipt Date: 20231010
  Transmission Date: 20240109
  Serious: Yes (Other)
  Sender: FDA-Public Use
  Company Number: GB-MLMSERVICE-20230112-4037207-2

PATIENT
  Sex: Male

DRUGS (7)
  1. ARIPIPRAZOLE [Suspect]
     Active Substance: ARIPIPRAZOLE
     Indication: Anxiety disorder
     Dosage: 8 MILLIGRAM, ONCE A DAY
     Route: 065
  2. ARIPIPRAZOLE [Suspect]
     Active Substance: ARIPIPRAZOLE
     Indication: Behaviour disorder
     Dosage: 7.5 MILLIGRAM
     Route: 065
  3. ARIPIPRAZOLE [Suspect]
     Active Substance: ARIPIPRAZOLE
     Dosage: 5 MILLIGRAM, ONCE A DAY
     Route: 065
  4. RISPERIDONE [Suspect]
     Active Substance: RISPERIDONE
     Indication: Anxiety disorder
     Dosage: 4 MILLIGRAM, ONCE A DAY
     Route: 065
  5. RISPERIDONE [Suspect]
     Active Substance: RISPERIDONE
     Indication: Behaviour disorder
     Dosage: 2.5 MILLIGRAM
     Route: 065
  6. VALPROATE SODIUM [Concomitant]
     Active Substance: VALPROATE SODIUM
     Indication: Epilepsy
     Dosage: UNK
     Route: 065
  7. MELATONIN [Concomitant]
     Active Substance: MELATONIN
     Indication: Somnolence
     Dosage: UNK
     Route: 065

REACTIONS (4)
  - Parkinsonism [Recovered/Resolved]
  - Extrapyramidal disorder [Recovered/Resolved]
  - Dopamine dysregulation syndrome [Recovered/Resolved]
  - Oculogyric crisis [Recovered/Resolved]
